FAERS Safety Report 12165380 (Version 1)
Quarter: 2016Q1

REPORT INFORMATION
  Report Type: Spontaneous
  Country: FR (occurrence: FR)
  Receive Date: 20160309
  Receipt Date: 20160309
  Transmission Date: 20160526
  Serious: Yes (Hospitalization)
  Sender: FDA-Public Use
  Company Number: FR-SA-2016SA042918

PATIENT
  Age: 79 Year
  Sex: Female

DRUGS (7)
  1. CEFTRIAXONE. [Suspect]
     Active Substance: CEFTRIAXONE
     Indication: MENINGITIS
     Route: 042
     Dates: start: 20160124, end: 20160126
  2. METHOTREXATE [Concomitant]
     Active Substance: METHOTREXATE
     Indication: OCULAR SARCOIDOSIS
     Route: 048
     Dates: start: 2012
  3. OMNIPAQUE [Suspect]
     Active Substance: IOHEXOL
     Indication: SCAN BRAIN
     Dosage: OMNIPAQUE 350MG/L00 ML?EXACT DOSE NOT PROVIDED (1 DF, 1 SINGLE INTAKE)
     Route: 042
     Dates: start: 20160124, end: 20160124
  4. LOVENOX [Suspect]
     Active Substance: ENOXAPARIN SODIUM
     Indication: THROMBOSIS PROPHYLAXIS
     Route: 058
     Dates: start: 20160125, end: 20160125
  5. CLAMOXYL [Suspect]
     Active Substance: AMOXICILLIN\CLAVULANIC ACID
     Indication: MENINGITIS
     Route: 042
     Dates: start: 20160124, end: 20160126
  6. CORTANCYL [Concomitant]
     Active Substance: PREDNISONE
     Indication: OCULAR SARCOIDOSIS
     Dosage: CORTANCYL 5 MG, TABLET
     Route: 048
     Dates: start: 2012
  7. SPECIAFOLDINE [Concomitant]
     Active Substance: FOLIC ACID
     Indication: ADVERSE EVENT
     Dosage: 5 MG
     Route: 048
     Dates: start: 2012

REACTIONS (1)
  - Acute kidney injury [Recovered/Resolved]

NARRATIVE: CASE EVENT DATE: 20160126
